FAERS Safety Report 7152838-8 (Version None)
Quarter: 2010Q4

REPORT INFORMATION
  Report Type: 
  Country: None (occurrence: None)
  Receive Date: 20101213
  Receipt Date: 20101206
  Transmission Date: 20110411
  Serious: Yes (Hospitalization, Other)
  Sender: FDA-Public Use
  Company Number: PHHY2009CA47466

PATIENT
  Sex: Male

DRUGS (15)
  1. EXJADE [Suspect]
     Indication: MYELODYSPLASTIC SYNDROME
     Dosage: 1500 MG, UNK
     Route: 048
     Dates: start: 20080101
  2. EXJADE [Suspect]
     Dosage: 1500 MG, UNK
     Route: 048
  3. EXJADE [Suspect]
     Dosage: 1000 MG, QD
     Route: 048
     Dates: start: 20100303
  4. EXJADE [Suspect]
     Dosage: 1000 MG, QD
     Dates: start: 20100520, end: 20101130
  5. ALTACE [Concomitant]
     Dosage: 10 MG, QD
     Route: 048
  6. NORVASC [Concomitant]
     Dosage: 5 MG, QD
     Route: 048
  7. CRESTOR [Concomitant]
     Dosage: 20 MG, QD
     Route: 048
  8. NEXIUM [Concomitant]
     Dosage: 40 MG, QD
     Route: 048
  9. DOMPERIDONE [Concomitant]
     Dosage: 10 MG 4 TIMES A DAY
     Route: 048
  10. ASPIRIN [Concomitant]
     Dosage: 81 MG, QD
     Route: 048
  11. PENLAC [Concomitant]
  12. OXAZEPAM [Concomitant]
     Dosage: 15 MG, UNK
     Route: 048
  13. ATIVAN [Concomitant]
     Dosage: 2 DF, UNK
     Route: 060
  14. COVERSYL [Concomitant]
     Dosage: 4 MG, QD
     Route: 048
  15. ATENOLOL [Concomitant]
     Dosage: 25 MG, QD
     Route: 048

REACTIONS (11)
  - ABDOMINAL DISCOMFORT [None]
  - ANORECTAL DISORDER [None]
  - ARTERIAL DISORDER [None]
  - ARTERIOSCLEROSIS [None]
  - CHEST PAIN [None]
  - HAEMORRHAGE [None]
  - MALAISE [None]
  - PHARYNGITIS [None]
  - RASH [None]
  - RASH GENERALISED [None]
  - VOMITING [None]
